FAERS Safety Report 19462863 (Version 4)
Quarter: 2021Q3

REPORT INFORMATION
  Report Type: Report from Study
  Country: US (occurrence: US)
  Receive Date: 20210625
  Receipt Date: 20210726
  Transmission Date: 20211014
  Serious: No
  Sender: FDA-Public Use
  Company Number: NVSC2021US136710

PATIENT
  Age: 60 Year
  Sex: Female

DRUGS (6)
  1. ILARIS [Suspect]
     Active Substance: CANAKINUMAB
     Dosage: 150 MG, QMO
     Route: 058
     Dates: start: 20210701
  2. ILARIS [Suspect]
     Active Substance: CANAKINUMAB
     Dosage: 150 MG, QMO
     Route: 058
     Dates: start: 202106
  3. ATIVAN [Concomitant]
     Active Substance: LORAZEPAM
     Indication: PRODUCT USED FOR UNKNOWN INDICATION
     Dosage: 2 MG
     Route: 065
  4. BENADRYL [Suspect]
     Active Substance: DIPHENHYDRAMINE HYDROCHLORIDE
     Indication: PRODUCT USED FOR UNKNOWN INDICATION
     Dosage: 50 MG
     Route: 065
  5. ILARIS [Suspect]
     Active Substance: CANAKINUMAB
     Indication: PYREXIA
     Dosage: 150 MG, EVERY 4 WEEKS
     Route: 058
     Dates: start: 20210615
  6. ILARIS [Suspect]
     Active Substance: CANAKINUMAB
     Route: 058

REACTIONS (25)
  - Lacrimation increased [Unknown]
  - Nasopharyngitis [Unknown]
  - Pyrexia [Unknown]
  - Rhinitis [Unknown]
  - Tachycardia [Unknown]
  - Erythema [Unknown]
  - Hypersensitivity [Unknown]
  - Pain [Unknown]
  - Eye irritation [Unknown]
  - Peripheral swelling [Unknown]
  - Hypoaesthesia [Unknown]
  - Headache [Unknown]
  - Irritable bowel syndrome [Unknown]
  - Product design issue [Unknown]
  - Drug ineffective [Unknown]
  - Anxiety [Unknown]
  - Asthenia [Unknown]
  - Ocular hyperaemia [Unknown]
  - Panic attack [Unknown]
  - Oral discomfort [Unknown]
  - Urticaria [Unknown]
  - Illness [Unknown]
  - Vertigo [Unknown]
  - Eye irritation [Unknown]
  - Pain in extremity [Recovering/Resolving]

NARRATIVE: CASE EVENT DATE: 20210629
